FAERS Safety Report 7403599-6 (Version None)
Quarter: 2011Q2

REPORT INFORMATION
  Report Type: 
  Country: None (occurrence: None)
  Receive Date: 20110408
  Receipt Date: 20110406
  Transmission Date: 20111010
  Serious: Yes (Hospitalization)
  Sender: FDA-Public Use
  Company Number: BG-TEVA-2010XM22-04-00075

PATIENT
  Sex: Female
  Weight: 47 kg

DRUGS (29)
  1. XM22 PEG-FILGRASTIM [Suspect]
     Dosage: BLINDED XM22 6 MG OR PLACEBO
     Route: 058
     Dates: start: 20100722, end: 20100722
  2. CISPLATIN [Suspect]
     Indication: NON-SMALL CELL LUNG CANCER
     Route: 041
     Dates: start: 20100629, end: 20100629
  3. METOCLOPRAMIDE [Concomitant]
     Indication: VOMITING
     Route: 048
     Dates: start: 20100902, end: 20100907
  4. DEXTROSE 5% [Concomitant]
     Route: 042
     Dates: start: 20100902, end: 20100907
  5. KALIUM CHLORATUM 15% [Concomitant]
     Indication: HYPOKALAEMIA
     Route: 042
     Dates: start: 20100907, end: 20100912
  6. XM22 PEG-FILGRASTIM [Suspect]
     Indication: COLONY STIMULATING FACTOR PROPHYLAXIS
     Dosage: BLINDED XM22 6 MG OR PLACEBO
     Route: 058
     Dates: start: 20100702, end: 20100702
  7. XM22 PEG-FILGRASTIM [Suspect]
     Dosage: BLINDED XM22 6 MG OR PLACEBO
     Route: 058
     Dates: start: 20100812, end: 20100812
  8. METOCLOPRAMIDE [Concomitant]
     Indication: NAUSEA
     Route: 048
     Dates: start: 20100722, end: 20100731
  9. AMIODARONE [Concomitant]
     Indication: ATRIAL FIBRILLATION
     Route: 041
     Dates: start: 20100907, end: 20100908
  10. CISPLATIN [Suspect]
     Route: 041
     Dates: start: 20100719, end: 20100719
  11. CISPLATIN [Suspect]
     Route: 041
     Dates: start: 20100809, end: 20100809
  12. METHYLPREDNISOLONE [Concomitant]
     Indication: NEUTROPENIA
     Route: 042
     Dates: start: 20100728, end: 20100728
  13. AMIODARONE [Concomitant]
     Route: 048
     Dates: start: 20100909
  14. ETOPOSIDE [Suspect]
     Route: 041
     Dates: start: 20100809, end: 20100811
  15. TRAMADOL HCL [Concomitant]
     Indication: MUSCULOSKELETAL CHEST PAIN
     Route: 048
     Dates: start: 20100629
  16. XM22 PEG-FILGRASTIM [Suspect]
     Dosage: BLINDED XM22 6 MG OR PLACEBO
     Route: 058
     Dates: start: 20100902, end: 20100902
  17. ETOPOSIDE [Suspect]
     Indication: NON-SMALL CELL LUNG CANCER
     Route: 041
     Dates: start: 20100629, end: 20100701
  18. DIHYDROCODEINE BITARTRATE INJ [Concomitant]
     Indication: MUSCULOSKELETAL CHEST PAIN
     Route: 048
     Dates: start: 20100622, end: 20100629
  19. ONDANSETRON [Concomitant]
     Indication: NAUSEA
     Route: 042
     Dates: start: 20100630, end: 20100702
  20. GRANISETRON HCL [Concomitant]
     Indication: VOMITING
     Route: 042
     Dates: start: 20100813, end: 20100815
  21. DEXTROSE 5% [Concomitant]
     Indication: DECREASED APPETITE
     Route: 042
     Dates: start: 20100813, end: 20100815
  22. CISPLATIN [Suspect]
     Route: 041
     Dates: start: 20100830, end: 20100830
  23. METHYLPREDNISOLONE [Concomitant]
     Indication: DYSPNOEA
     Route: 042
     Dates: start: 20100708, end: 20100708
  24. MORPHINE HYDROCHLORIDE [Concomitant]
     Indication: DYSPNOEA
     Route: 058
     Dates: start: 20100710, end: 20100712
  25. GRANISETRON HCL [Concomitant]
     Indication: NAUSEA
  26. ETOPOSIDE [Suspect]
     Route: 041
     Dates: start: 20100719, end: 20100721
  27. RINGER'S SOLUTION [Concomitant]
     Indication: DECREASED APPETITE
     Route: 042
     Dates: start: 20100813, end: 20100815
  28. RINGER'S SOLUTION [Concomitant]
     Route: 042
     Dates: start: 20100902, end: 20100907
  29. ETOPOSIDE [Suspect]
     Route: 041
     Dates: start: 20100830, end: 20100901

REACTIONS (1)
  - ATRIAL FIBRILLATION [None]
